FAERS Safety Report 17425758 (Version 2)
Quarter: 2020Q1

REPORT INFORMATION
  Report Type: Report from Study
  Country: GB (occurrence: GB)
  Receive Date: 20200218
  Receipt Date: 20200331
  Transmission Date: 20200409
  Serious: Yes (Hospitalization)
  Sender: FDA-Public Use
  Company Number: GB-ROCHE-2343448

PATIENT
  Sex: Female

DRUGS (1)
  1. ROACTEMRA [Suspect]
     Active Substance: TOCILIZUMAB
     Indication: RHEUMATOID ARTHRITIS
     Route: 058
     Dates: start: 20171117

REACTIONS (8)
  - Blood pressure orthostatic decreased [Unknown]
  - Cerebral haemorrhage [Unknown]
  - Blood pressure decreased [Unknown]
  - Eye contusion [Unknown]
  - Transient ischaemic attack [Unknown]
  - Head injury [Unknown]
  - Hypotension [Unknown]
  - Contusion [Unknown]
